FAERS Safety Report 8514978 (Version 2)
Quarter: 2012Q4

REPORT INFORMATION
  Report Type: Report from Study
  Country: US (occurrence: US)
  Receive Date: 20120416
  Receipt Date: 20120925
  Transmission Date: 20130627
  Serious: Yes (Hospitalization)
  Sender: FDA-Public Use
  Company Number: PHHO2012US001755

PATIENT
  Age: 46 Year
  Sex: Male
  Weight: 127 kg

DRUGS (5)
  1. ALISKIREN [Suspect]
     Indication: CARDIAC FAILURE ACUTE
     Dosage: UNK
     Route: 048
     Dates: start: 20110125
  2. LISINOPRIL [Suspect]
     Indication: HYPERTENSION
     Dosage: 40 mg, UNK
     Route: 048
     Dates: start: 20110124
  3. COREG [Suspect]
     Indication: HYPERTENSION
     Dosage: 12.5 mg, BID
     Dates: start: 20110124
  4. COREG [Suspect]
     Dosage: UNK
     Dates: start: 20111027
  5. PRAVASTATIN [Concomitant]
     Indication: HYPERCHOLESTEROLAEMIA
     Dosage: 40 mg, UNK
     Route: 048
     Dates: start: 20110124

REACTIONS (1)
  - Cardiac failure [Recovered/Resolved]
